FAERS Safety Report 8863153 (Version 1)
Quarter: 2012Q4

REPORT INFORMATION
  Report Type: Report from Study
  Country: IL (occurrence: IL)
  Receive Date: 20121026
  Receipt Date: 20121026
  Transmission Date: 20130627
  Serious: Yes (Hospitalization)
  Sender: FDA-Public Use
  Company Number: IL-GLAXOSMITHKLINE-A0998672A

PATIENT
  Sex: Female

DRUGS (4)
  1. BELIMUMAB [Suspect]
     Indication: SYSTEMIC LUPUS ERYTHEMATOSUS
     Route: 042
     Dates: start: 20091019
  2. PREDNISONE [Concomitant]
     Indication: SYSTEMIC LUPUS ERYTHEMATOSUS
     Dosage: 5MG Per day
     Route: 048
     Dates: start: 2003
  3. PLAQUENIL [Concomitant]
     Indication: SYSTEMIC LUPUS ERYTHEMATOSUS
     Dosage: 200MG Twice per day
     Route: 048
     Dates: start: 1998
  4. AZATHIOPRINE [Concomitant]
     Indication: SYSTEMIC LUPUS ERYTHEMATOSUS
     Dosage: 50MG Twice per day
     Route: 048
     Dates: start: 1998

REACTIONS (1)
  - Anaemia [Unknown]
